FAERS Safety Report 8260103-0 (Version None)
Quarter: 2012Q2

REPORT INFORMATION
  Report Type: 
  Country: None (occurrence: None)
  Receive Date: 20120404
  Receipt Date: 20120327
  Transmission Date: 20120825
  Serious: Yes (Hospitalization)
  Sender: FDA-Public Use
  Company Number: KR-ABBOTT-12P-090-0919179-00

PATIENT
  Age: 36 Year
  Sex: Male

DRUGS (1)
  1. HUMIRA [Suspect]
     Indication: CROHN'S DISEASE
     Route: 058
     Dates: start: 20110812

REACTIONS (5)
  - GASTROINTESTINAL INFLAMMATION [None]
  - SYNCOPE [None]
  - INTESTINAL HAEMORRHAGE [None]
  - GASTRIC DISORDER [None]
  - DIARRHOEA [None]
